FAERS Safety Report 18533127 (Version 2)
Quarter: 2020Q4

REPORT INFORMATION
  Report Type: Report from Study
  Country: US (occurrence: US)
  Receive Date: 20201123
  Receipt Date: 20201215
  Transmission Date: 20210114
  Serious: Yes (Other)
  Sender: FDA-Public Use
  Company Number: US-TEVA-2020-US-1852170

PATIENT
  Age: 5 Year
  Sex: Female

DRUGS (1)
  1. RIFAMPICIN [Suspect]
     Active Substance: RIFAMPIN
     Indication: CYSTIC FIBROSIS LUNG
     Dosage: IN 2018
     Route: 065

REACTIONS (1)
  - Drug resistance [Unknown]
